FAERS Safety Report 18889263 (Version 9)
Quarter: 2021Q3

REPORT INFORMATION
  Report Type: Spontaneous
  Country: CA (occurrence: CA)
  Receive Date: 20210212
  Receipt Date: 20210929
  Transmission Date: 20211014
  Serious: Yes (Other)
  Sender: FDA-Public Use
  Company Number: CA-CELLTRION INC.-2020CA024716

PATIENT

DRUGS (15)
  1. INFLECTRA [Suspect]
     Active Substance: INFLIXIMAB-DYYB
     Dosage: 1300 MG, 0, 2, 6, THEN EVERY 8 WEEKS
     Route: 042
     Dates: start: 20200820
  2. INFLECTRA [Suspect]
     Active Substance: INFLIXIMAB-DYYB
     Dosage: 1300 MG, EVERY 4 WEEKS
     Route: 042
     Dates: start: 20210218, end: 20210218
  3. INFLECTRA [Suspect]
     Active Substance: INFLIXIMAB-DYYB
     Dosage: 1300 MG Q 0, 2, 6 WEEKS, THEN EVERY 8 WEEKS (RELOAD)
     Route: 042
     Dates: start: 20210527
  4. INFLECTRA [Suspect]
     Active Substance: INFLIXIMAB-DYYB
     Dosage: 1300 MG Q 0, 2, 6 WEEKS, THEN EVERY 8 WEEKS (RELOAD)
     Route: 042
     Dates: start: 20210304
  5. INFLECTRA [Suspect]
     Active Substance: INFLIXIMAB-DYYB
     Dosage: 1300 MG Q 0, 2, 6 WEEKS, THEN EVERY 8 WEEKS (RELOAD)
     Route: 042
     Dates: start: 20210916
  6. INFLECTRA [Suspect]
     Active Substance: INFLIXIMAB-DYYB
     Dosage: 1300 MG Q 0, 2, 6 WEEKS, THEN EVERY 8 WEEKS (RELOAD)
     Route: 042
     Dates: start: 20210722
  7. AZATHIOPRINE. [Concomitant]
     Active Substance: AZATHIOPRINE
     Dosage: 1 DF
     Route: 065
     Dates: start: 202007
  8. INFLECTRA [Suspect]
     Active Substance: INFLIXIMAB-DYYB
     Indication: COLITIS ULCERATIVE
     Dosage: 1300 MG, 0, 2, 6, THEN EVERY 8 WEEKS
     Route: 042
     Dates: start: 20200806, end: 20210108
  9. INFLECTRA [Suspect]
     Active Substance: INFLIXIMAB-DYYB
     Dosage: 1300 MG Q 0, 2, 6 WEEKS, THEN EVERY 8 WEEKS (RELOAD)
     Route: 042
     Dates: start: 20210624
  10. INFLECTRA [Suspect]
     Active Substance: INFLIXIMAB-DYYB
     Dosage: 1300 MG Q 0, 2, 6 WEEKS, THEN EVERY 8 WEEKS (RELOAD)
     Route: 042
     Dates: start: 20210429
  11. INFLECTRA [Suspect]
     Active Substance: INFLIXIMAB-DYYB
     Dosage: 1300 MG, 0, 2, 6, THEN EVERY 8 WEEKS
     Route: 042
     Dates: start: 20210108
  12. INFLECTRA [Suspect]
     Active Substance: INFLIXIMAB-DYYB
     Dosage: 1300 MG Q 0, 2, 6 WEEKS, THEN EVERY 8 WEEKS (RELOAD)
     Route: 042
     Dates: start: 20210401
  13. INFLECTRA [Suspect]
     Active Substance: INFLIXIMAB-DYYB
     Dosage: 1300 MG Q 0, 2, 6 WEEKS, THEN EVERY 8 WEEKS (RELOAD)
     Route: 042
     Dates: start: 20210916
  14. INFLECTRA [Suspect]
     Active Substance: INFLIXIMAB-DYYB
     Dosage: 1300 MG, 0, 2, 6, THEN EVERY 8 WEEKS
     Route: 042
     Dates: start: 20201113
  15. INFLECTRA [Suspect]
     Active Substance: INFLIXIMAB-DYYB
     Dosage: 1300 MG EVERY 4 WEEKS. NOT YET STARTED.
     Route: 042

REACTIONS (14)
  - Blood pressure fluctuation [Unknown]
  - Diabetes mellitus [Unknown]
  - Off label use [Unknown]
  - Malaise [Unknown]
  - Drug ineffective [Unknown]
  - Condition aggravated [Not Recovered/Not Resolved]
  - Off label use [Unknown]
  - Nausea [Unknown]
  - Vomiting [Unknown]
  - Weight decreased [Unknown]
  - C-reactive protein increased [Unknown]
  - Intentional product use issue [Unknown]
  - Hepatic steatosis [Unknown]
  - Off label use [Unknown]

NARRATIVE: CASE EVENT DATE: 2020
